FAERS Safety Report 5418689-7 (Version None)
Quarter: 2007Q3

REPORT INFORMATION
  Report Type: 
  Country: None (occurrence: None)
  Receive Date: 20070817
  Receipt Date: 20070806
  Transmission Date: 20080115
  Serious: Yes (Death, Other)
  Sender: FDA-Public Use
  Company Number: US-PFIZER INC-2007001690

PATIENT
  Sex: Male

DRUGS (2)
  1. CHANTIX [Suspect]
     Indication: EX-SMOKER
     Route: 048
     Dates: start: 20061219, end: 20061201
  2. ZITHROMAX [Concomitant]
     Route: 048

REACTIONS (8)
  - APHTHOUS STOMATITIS [None]
  - DYSPNOEA [None]
  - ERYTHEMA [None]
  - HYPERSENSITIVITY [None]
  - LUNG NEOPLASM MALIGNANT [None]
  - LYMPHOMA [None]
  - PRURITUS GENERALISED [None]
  - URTICARIA [None]
